FAERS Safety Report 23777399 (Version 3)
Quarter: 2024Q2

REPORT INFORMATION
  Report Type: Spontaneous
  Country: US (occurrence: US)
  Receive Date: 20240424
  Receipt Date: 20240506
  Transmission Date: 20240716
  Serious: No
  Sender: FDA-Public Use
  Company Number: US-ABBVIE-5731970

PATIENT
  Sex: Female

DRUGS (4)
  1. LINZESS [Suspect]
     Active Substance: LINACLOTIDE
     Indication: Intestinal obstruction
     Dosage: DOSE REDUCED, FORM STRENGTH: 72 MICROGRAM, LINACLOTIDE 145MCG CAP
     Route: 048
  2. LINZESS [Suspect]
     Active Substance: LINACLOTIDE
     Indication: Intestinal obstruction
     Dosage: DOSE REDUCED,  FORM STRENGTH: 72 MICROGRAM, LINACLOTIDE 145MCG CAP
     Route: 048
  3. LINZESS [Suspect]
     Active Substance: LINACLOTIDE
     Indication: Intestinal obstruction
     Dosage: FORM STRENGTH: 145 MICROGRAM, LINACLOTIDE 145MCG CAP
     Route: 048
     Dates: start: 2022
  4. GABAPENTIN [Concomitant]
     Active Substance: GABAPENTIN
     Indication: Back disorder

REACTIONS (5)
  - Balance disorder [Recovering/Resolving]
  - Asthenia [Not Recovered/Not Resolved]
  - Diarrhoea [Recovering/Resolving]
  - Fatigue [Not Recovered/Not Resolved]
  - Constipation [Unknown]

NARRATIVE: CASE EVENT DATE: 20220101
